FAERS Safety Report 8947557 (Version 1)
Quarter: 2012Q4

REPORT INFORMATION
  Report Type: 
  Country: US (occurrence: US)
  Receive Date: 20121204
  Receipt Date: 20121204
  Transmission Date: 20130627
  Serious: Yes (Hospitalization, Other)
  Sender: FDA-Public Use
  Company Number: US-ELI_LILLY_AND_COMPANY-US201212000440

PATIENT
  Age: 73 Year
  Sex: Male

DRUGS (3)
  1. CIALIS [Suspect]
     Indication: ERECTILE DYSFUNCTION
     Dosage: 2.5 mg, prn
  2. CRESTOR [Concomitant]
  3. CARDIOVEL [Concomitant]

REACTIONS (4)
  - Cardiac operation [Unknown]
  - Nausea [Unknown]
  - Genital hypoaesthesia [Unknown]
  - Inappropriate schedule of drug administration [Unknown]
